FAERS Safety Report 8090062-5 (Version None)
Quarter: 2012Q1

REPORT INFORMATION
  Report Type: 
  Country: None (occurrence: None)
  Receive Date: 20120129
  Receipt Date: 20111028
  Transmission Date: 20120608
  Serious: No
  Sender: FDA-Public Use
  Company Number: US-ABBOTT-11P-163-0869416-00

PATIENT
  Age: 53 Year
  Sex: Male

DRUGS (5)
  1. GLUCOTROL [Concomitant]
     Indication: DIABETES MELLITUS
  2. HUMIRA [Suspect]
     Indication: PSORIATIC ARTHROPATHY
     Dates: start: 20110901, end: 20111027
  3. METFFORMIN HYDROCHLORIDE [Concomitant]
     Indication: DIABETES MELLITUS
  4. UNKNOWN BLOOD PRESSURE PILL [Concomitant]
     Indication: HYPERTENSION
  5. LORTAB [Concomitant]
     Indication: PAIN

REACTIONS (2)
  - INJECTION SITE HAEMATOMA [None]
  - PSORIASIS [None]
